FAERS Safety Report 15239284 (Version 1)
Quarter: 2018Q3

REPORT INFORMATION
  Report Type: Spontaneous
  Country: DE (occurrence: DE)
  Receive Date: 20180803
  Receipt Date: 20180803
  Transmission Date: 20181010
  Serious: Yes (Other)
  Sender: FDA-Public Use
  Company Number: PHHY2018DE027132

PATIENT
  Age: 26 Year
  Sex: Male
  Weight: 59 kg

DRUGS (7)
  1. PYRIDOXINE [Concomitant]
     Active Substance: PYRIDOXINE
     Indication: PRODUCT USED FOR UNKNOWN INDICATION
     Dosage: 60 MG
     Route: 065
  2. ISONIAZID. [Suspect]
     Active Substance: ISONIAZID
     Indication: EXTRAPULMONARY TUBERCULOSIS
  3. VITAMIN D [Suspect]
     Active Substance: CHOLECALCIFEROL
     Indication: TUBERCULOSIS
     Dosage: (1000 IE), UNK
     Route: 048
  4. ISONIAZID. [Suspect]
     Active Substance: ISONIAZID
     Indication: TUBERCULOSIS
     Dosage: 300 MG, UNK
     Route: 048
  5. ETHAMBUTOL [Suspect]
     Active Substance: ETHAMBUTOL HYDROCHLORIDE
     Indication: TUBERCULOSIS
     Dosage: 2000 MG, UNK
     Route: 048
  6. RIFAMPIN. [Suspect]
     Active Substance: RIFAMPIN
     Indication: TUBERCULOSIS
     Dosage: 600 MG, UNK
     Route: 048
  7. PYRAZINAMIDE. [Suspect]
     Active Substance: PYRAZINAMIDE
     Indication: TUBERCULOSIS
     Dosage: 2000 MG, UNK
     Route: 048

REACTIONS (7)
  - Necrosis [Recovered/Resolved]
  - Paradoxical drug reaction [Recovered/Resolved]
  - Granuloma [Recovered/Resolved]
  - Purulent discharge [Recovered/Resolved]
  - Tuberculosis [Unknown]
  - Skin necrosis [Unknown]
  - Lymphadenopathy [Recovered/Resolved]
